FAERS Safety Report 11223316 (Version 1)
Quarter: 2015Q2

REPORT INFORMATION
  Report Type: Spontaneous
  Country: US (occurrence: US)
  Receive Date: 20150626
  Receipt Date: 20150626
  Transmission Date: 20150821
  Serious: No
  Sender: FDA-Public Use
  Company Number: US-ASTRAZENECA-2015SE60094

PATIENT
  Age: 70 Year
  Sex: Male

DRUGS (9)
  1. FELODIPINE. [Suspect]
     Active Substance: FELODIPINE
     Route: 048
  2. VIMPAT [Suspect]
     Active Substance: LACOSAMIDE
     Route: 065
  3. ZONEGRAN [Suspect]
     Active Substance: ZONISAMIDE
     Route: 065
  4. ATENOLOL. [Suspect]
     Active Substance: ATENOLOL
     Route: 048
  5. DIOVAN HCT [Suspect]
     Active Substance: HYDROCHLOROTHIAZIDE\VALSARTAN
     Dosage: NON AZ
     Route: 065
  6. DIOVAN [Suspect]
     Active Substance: VALSARTAN
     Route: 065
  7. KIDNEY PILL [Concomitant]
  8. SUPPLEMENT FOR BP [Concomitant]
  9. SYNTHROID [Suspect]
     Active Substance: LEVOTHYROXINE SODIUM
     Route: 065

REACTIONS (8)
  - Anxiety [Unknown]
  - Dizziness [Unknown]
  - Rash [Unknown]
  - Product dosage form issue [Unknown]
  - Feeling abnormal [Unknown]
  - Product packaging issue [Unknown]
  - Heart rate decreased [Unknown]
  - Product colour issue [Unknown]
